FAERS Safety Report 21639297 (Version 6)
Quarter: 2023Q2

REPORT INFORMATION
  Report Type: Spontaneous
  Country: CL (occurrence: CL)
  Receive Date: 20221124
  Receipt Date: 20230407
  Transmission Date: 20230721
  Serious: Yes (Death, Hospitalization, Other)
  Sender: FDA-Public Use
  Company Number: CL-009507513-2206CHL000537

PATIENT
  Age: 70 Year
  Sex: Male
  Weight: 58 kg

DRUGS (14)
  1. LOSARTAN POTASSIUM [Suspect]
     Active Substance: LOSARTAN POTASSIUM
     Indication: Respiratory failure
     Dosage: 50 MILLIGRAM, QD
     Route: 048
     Dates: start: 20220530, end: 20220619
  2. SPIRONOLACTONE [Suspect]
     Active Substance: SPIRONOLACTONE
     Indication: Respiratory failure
     Dosage: 25 MILLIGRAM, QD
     Route: 048
     Dates: start: 20220530, end: 20220619
  3. TRAMADOL HYDROCHLORIDE [Concomitant]
     Active Substance: TRAMADOL HYDROCHLORIDE
     Indication: Back pain
     Dosage: 100 MILLILITER, TID
     Route: 048
     Dates: start: 20220421, end: 20220529
  4. DOMPERIDONE [Concomitant]
     Active Substance: DOMPERIDONE
     Indication: Prophylaxis
     Dosage: 10 MILLIGRAM, TID
     Route: 048
     Dates: start: 20220421, end: 20220529
  5. CELECOXIB [Concomitant]
     Active Substance: CELECOXIB
     Indication: Back pain
     Dosage: 200 MILLIGRAM, BID
     Route: 048
     Dates: start: 20220421, end: 20220529
  6. ONDANSETRON [Concomitant]
     Active Substance: ONDANSETRON
     Indication: Prophylaxis
     Dosage: 4 MILLIGRAM DAILY, PRN
     Route: 048
     Dates: start: 20220511
  7. PREGABALIN [Concomitant]
     Active Substance: PREGABALIN
     Indication: Prophylaxis
     Dosage: 75 MILLIGRAM, QD
     Route: 048
     Dates: start: 20220519, end: 20220705
  8. ACETAMINOPHEN [Concomitant]
     Active Substance: ACETAMINOPHEN
     Indication: Back pain
     Dosage: 1 GRAM, TID
     Route: 048
     Dates: start: 20220421, end: 20220529
  9. JARDIANCE [Concomitant]
     Active Substance: EMPAGLIFLOZIN
     Indication: Steroid diabetes
     Dosage: UNK
  10. BUPRENORPHINE [Concomitant]
     Active Substance: BUPRENORPHINE
     Indication: Pain
     Dosage: UNK
  11. ZOLEDRONIC ACID [Concomitant]
     Active Substance: ZOLEDRONIC ACID
     Indication: Hypercalcaemia
     Dosage: UNK
  12. DIPYRONE [Concomitant]
     Active Substance: DIPYRONE
     Indication: Palliative care
     Dosage: UNK
  13. QUETIAPINE FUMARATE [Concomitant]
     Active Substance: QUETIAPINE FUMARATE
     Indication: Palliative care
     Dosage: UNK
  14. CEFADROXIL [Concomitant]
     Active Substance: CEFADROXIL
     Indication: Infection
     Dosage: UNK

REACTIONS (7)
  - Cardio-respiratory arrest [Fatal]
  - Spinal cord compression [Unknown]
  - Condition aggravated [Recovered/Resolved]
  - Condition aggravated [Unknown]
  - Hyperkalaemia [Recovered/Resolved]
  - Hyperkalaemia [Unknown]
  - Product use in unapproved indication [Unknown]

NARRATIVE: CASE EVENT DATE: 20220616
